FAERS Safety Report 13565918 (Version 1)
Quarter: 2017Q2

REPORT INFORMATION
  Report Type: Spontaneous
  Country: DK (occurrence: DK)
  Receive Date: 20170520
  Receipt Date: 20170520
  Transmission Date: 20170830
  Serious: Yes (Death, Hospitalization)
  Sender: FDA-Public Use
  Company Number: DK-ACCORD-051638

PATIENT
  Age: 65 Year
  Sex: Male

DRUGS (1)
  1. CAPECITABINE ACCORD [Suspect]
     Active Substance: CAPECITABINE
     Indication: GASTROINTESTINAL NEOPLASM
     Dates: start: 20160412

REACTIONS (19)
  - Diarrhoea [Unknown]
  - Rash [Unknown]
  - Sepsis [Fatal]
  - Haematochezia [Unknown]
  - Genital infection fungal [Unknown]
  - Oral mucosal erythema [Unknown]
  - Skin wound [Unknown]
  - Ascites [Unknown]
  - Overdose [Unknown]
  - Syncope [Unknown]
  - Intestinal perforation [Unknown]
  - Mouth swelling [Unknown]
  - Fungal skin infection [Unknown]
  - Abdominal pain [Unknown]
  - Pain in extremity [Unknown]
  - Febrile neutropenia [Unknown]
  - Multiple organ dysfunction syndrome [Fatal]
  - Erythema [Unknown]
  - Ileus [Unknown]

NARRATIVE: CASE EVENT DATE: 201604
